FAERS Safety Report 23164339 (Version 1)
Quarter: 2023Q4

REPORT INFORMATION
  Report Type: Spontaneous
  Country: US (occurrence: None)
  Receive Date: 20231108
  Receipt Date: 20231108
  Transmission Date: 20240109
  Serious: Yes (Other)
  Sender: FDA-Public Use
  Company Number: None

PATIENT
  Age: 25 Year
  Sex: Female
  Weight: 54 kg

DRUGS (2)
  1. DEBROX [Suspect]
     Active Substance: CARBAMIDE PEROXIDE
     Indication: Cerumen removal
     Dosage: OTHER QUANTITY : 5 DROP(S);?FREQUENCY : DAILY;?
     Route: 001
  2. VITAMINS [Concomitant]
     Active Substance: VITAMINS

REACTIONS (1)
  - Tinnitus [None]

NARRATIVE: CASE EVENT DATE: 20231106
